FAERS Safety Report 5159841-8 (Version None)
Quarter: 2006Q4

REPORT INFORMATION
  Report Type: 
  Country: None (occurrence: None)
  Receive Date: 20061129
  Receipt Date: 20060213
  Transmission Date: 20070319
  Serious: No
  Sender: FDA-Public Use
  Company Number: US-GLAXOSMITHKLINE-A0593447A

PATIENT
  Age: 61 Year
  Sex: Female
  Weight: 55.5 kg

DRUGS (9)
  1. WELLBUTRIN SR [Suspect]
     Indication: DEPRESSION
     Dosage: 150MG TWICE PER DAY
     Route: 048
     Dates: start: 20051207, end: 20060211
  2. PREMARIN [Concomitant]
     Indication: MENOPAUSE
     Dosage: .625MG PER DAY
     Route: 048
     Dates: start: 19940101
  3. DIAVAN [Concomitant]
     Indication: BLOOD PRESSURE
     Route: 048
     Dates: start: 19950101
  4. TENORMIN [Concomitant]
     Indication: BLOOD PRESSURE
     Route: 048
     Dates: start: 19950101
  5. DARVOCET-N 100 [Concomitant]
     Indication: PAIN
     Route: 048
     Dates: start: 19940101
  6. VICODIN [Concomitant]
     Indication: PAIN
     Route: 048
  7. XANAX [Concomitant]
     Indication: ANXIETY
     Dosage: .25MG THREE TIMES PER DAY
     Route: 048
  8. ELAVIL [Concomitant]
     Indication: DEPRESSION
     Dosage: 40MG AT NIGHT
     Route: 048
     Dates: start: 19950101
  9. AMBIEN [Concomitant]
     Indication: INSOMNIA
     Dosage: 5MG AS REQUIRED
     Route: 048

REACTIONS (12)
  - ABDOMINAL PAIN [None]
  - ANOREXIA [None]
  - ANXIETY [None]
  - ASTHENIA [None]
  - DEPRESSION [None]
  - DYSGEUSIA [None]
  - DYSPEPSIA [None]
  - FLATULENCE [None]
  - HEADACHE [None]
  - MICTURITION URGENCY [None]
  - NAUSEA [None]
  - PHARMACEUTICAL PRODUCT COMPLAINT [None]
